FAERS Safety Report 6654369-8 (Version None)
Quarter: 2010Q1

REPORT INFORMATION
  Report Type: 
  Country: None (occurrence: None)
  Receive Date: 20100326
  Receipt Date: 20100315
  Transmission Date: 20100710
  Serious: Yes (Hospitalization)
  Sender: FDA-Public Use
  Company Number: FR-PFIZER INC-2010033384

PATIENT
  Age: 76 Year
  Sex: Female

DRUGS (2)
  1. ARTOTEC [Suspect]
     Indication: OSTEOARTHRITIS
     Dosage: UNK
     Route: 048
     Dates: start: 20100304, end: 20100306
  2. IXPRIM [Suspect]
     Indication: PAIN
     Dosage: UNK
     Route: 048
     Dates: start: 20100304, end: 20100306

REACTIONS (1)
  - RASH MORBILLIFORM [None]
